FAERS Safety Report 10637894 (Version 1)
Quarter: 2014Q4

REPORT INFORMATION
  Report Type: Spontaneous
  Country: FR (occurrence: FR)
  Receive Date: 20141208
  Receipt Date: 20141208
  Transmission Date: 20150529
  Serious: Yes (Hospitalization)
  Sender: FDA-Public Use
  Company Number: FR-PFIZER INC-2014331708

PATIENT
  Age: 75 Year
  Sex: Male

DRUGS (11)
  1. TAVANIC [Suspect]
     Active Substance: LEVOFLOXACIN
     Dosage: 125 MG, SINGLE
     Route: 042
     Dates: start: 20140418, end: 20140418
  2. CACIT D3 [Concomitant]
     Active Substance: CALCIUM\CHOLECALCIFEROL
     Dosage: UNK
  3. TAHOR [Concomitant]
     Active Substance: ATORVASTATIN CALCIUM
     Dosage: 20, UNK
  4. EUPANTOL [Concomitant]
     Active Substance: PANTOPRAZOLE SODIUM
     Dosage: UNK
  5. ROVAMYCINE [Concomitant]
     Active Substance: SPIRAMYCIN
     Dosage: UNK
  6. TAVANIC [Suspect]
     Active Substance: LEVOFLOXACIN
     Indication: PNEUMONIA LEGIONELLA
     Dosage: 500 MG, SINGLE
     Route: 042
     Dates: start: 20140417, end: 20140417
  7. TAVANIC [Suspect]
     Active Substance: LEVOFLOXACIN
     Dosage: 125 MG, UNK
     Route: 048
     Dates: start: 20140419, end: 20140421
  8. IMOVANE [Concomitant]
     Active Substance: ZOPICLONE
     Dosage: UNK
  9. SOLU-MEDROL [Suspect]
     Active Substance: METHYLPREDNISOLONE SODIUM SUCCINATE
     Dosage: STRENGTH 120 MG, UNK
     Route: 042
  10. DAFALGAN [Concomitant]
     Active Substance: ACETAMINOPHEN
     Dosage: UNK
  11. TAREG [Concomitant]
     Active Substance: VALSARTAN
     Dosage: 80, UNK

REACTIONS (3)
  - Tendon disorder [Recovering/Resolving]
  - Myalgia [Recovered/Resolved]
  - Tendon rupture [Not Recovered/Not Resolved]

NARRATIVE: CASE EVENT DATE: 201404
